FAERS Safety Report 12375688 (Version 1)
Quarter: 2016Q2

REPORT INFORMATION
  Report Type: Spontaneous
  Country: US (occurrence: None)
  Receive Date: 20160516
  Receipt Date: 20160516
  Transmission Date: 20160815
  Serious: Yes (Disabling, Other)
  Sender: FDA-Public Use
  Company Number: None

PATIENT
  Age: 50 Year
  Sex: Male
  Weight: 77.11 kg

DRUGS (1)
  1. LEVOFLOXACIN 500MG [Suspect]
     Active Substance: LEVOFLOXACIN
     Indication: PNEUMONIA
     Route: 048
     Dates: start: 20150224, end: 20150226

REACTIONS (5)
  - Tendonitis [None]
  - Gait disturbance [None]
  - Injury [None]
  - Grip strength decreased [None]
  - Pain [None]

NARRATIVE: CASE EVENT DATE: 20150422
